FAERS Safety Report 7852302-4 (Version None)
Quarter: 2011Q4

REPORT INFORMATION
  Report Type: 
  Country: None (occurrence: None)
  Receive Date: 20111026
  Receipt Date: 20111012
  Transmission Date: 20120403
  Serious: Yes (Hospitalization)
  Sender: FDA-Public Use
  Company Number: ES-ELI_LILLY_AND_COMPANY-ES201110003329

PATIENT
  Sex: Female

DRUGS (9)
  1. ASPIRIN [Concomitant]
  2. METFORMIN HCL [Concomitant]
  3. ATORVASTATIN [Concomitant]
  4. NOLOTIL [Concomitant]
  5. ACETAMINOPHEN [Concomitant]
  6. CAPTOPRIL [Concomitant]
  7. LEVEMIR [Concomitant]
  8. FORTEO [Suspect]
     Indication: OSTEOPOROSIS
     Dosage: 20 UG, UNK
     Route: 058
     Dates: start: 20110804, end: 20110805
  9. TORSEMIDE [Concomitant]

REACTIONS (10)
  - APALLIC SYNDROME [None]
  - DIZZINESS [None]
  - BLOOD GLUCOSE INCREASED [None]
  - COLITIS ISCHAEMIC [None]
  - CONFUSIONAL STATE [None]
  - DISCOMFORT [None]
  - CHONDROCALCINOSIS [None]
  - BLOOD THYROID STIMULATING HORMONE DECREASED [None]
  - DISORIENTATION [None]
  - MONARTHRITIS [None]
